FAERS Safety Report 6316825-1 (Version None)
Quarter: 2009Q3

REPORT INFORMATION
  Report Type: 
  Country: None (occurrence: None)
  Receive Date: 20090820
  Receipt Date: 20090807
  Transmission Date: 20100115
  Serious: Yes (Other)
  Sender: FDA-Public Use
  Company Number: GB-ROCHE-649648

PATIENT
  Age: 18 Year
  Sex: Female

DRUGS (4)
  1. TAMIFLU [Suspect]
     Indication: DRUG USE FOR UNKNOWN INDICATION
     Route: 065
     Dates: start: 20090723, end: 20090727
  2. AMITRIPTYLINE [Concomitant]
  3. NORETHISTERONE [Concomitant]
  4. WARFARIN [Concomitant]

REACTIONS (1)
  - COAGULATION TIME PROLONGED [None]
